FAERS Safety Report 6370765-0 (Version None)
Quarter: 2009Q3

REPORT INFORMATION
  Report Type: 
  Country: None (occurrence: None)
  Receive Date: 20090923
  Receipt Date: 20070725
  Transmission Date: 20100115
  Serious: Yes (Other)
  Sender: FDA-Public Use
  Company Number: US-ASTRAZENECA-2006UW23713

PATIENT
  Age: 431 Month
  Sex: Male

DRUGS (18)
  1. SEROQUEL [Suspect]
     Dosage: 25-800 MG
     Route: 048
     Dates: start: 20041122, end: 20050428
  2. RISPERDAL [Concomitant]
     Dosage: 0.5 - 2 MG
     Route: 065
  3. STRATTERA [Concomitant]
     Dosage: 40-60 MG
     Route: 065
  4. ATIVAN [Concomitant]
     Dosage: 2-4 MG
     Route: 065
  5. ZOLOFT [Concomitant]
     Dosage: 150G -1000 MG
     Route: 065
  6. DEPAKOTE [Concomitant]
     Dosage: 500-2000 MG
     Route: 065
  7. AMBIEN [Concomitant]
     Dosage: 10-12.5 MG
     Route: 065
  8. ADDERALL 10 [Concomitant]
     Dosage: 2-60 MG
     Route: 065
  9. KLONOPIN [Concomitant]
     Dosage: 1-4 MG
     Route: 065
  10. LEXAPRO [Concomitant]
     Route: 065
  11. PAXIL [Concomitant]
     Dosage: 25-60 MG
     Route: 065
  12. REMERON [Concomitant]
     Route: 065
  13. ZYPREXA [Concomitant]
     Dosage: 5-10 MG
     Route: 065
  14. CONCERTA [Concomitant]
     Dosage: 18-54 MG
     Route: 065
  15. TRAZODONE [Concomitant]
     Route: 065
  16. HYDROCODONE [Concomitant]
     Dosage: 5/500 MG
     Route: 065
  17. IBUPROFEN [Concomitant]
     Dosage: 400-800 MG
     Route: 065
  18. METHOCARBAMOL [Concomitant]
     Route: 065

REACTIONS (11)
  - ARTHRALGIA [None]
  - ATTENTION DEFICIT/HYPERACTIVITY DISORDER [None]
  - DIABETES MELLITUS [None]
  - INSOMNIA [None]
  - IRRITABILITY [None]
  - MOOD SWINGS [None]
  - PAIN IN EXTREMITY [None]
  - RADIUS FRACTURE [None]
  - SUICIDAL IDEATION [None]
  - TRAUMATIC ARTHROPATHY [None]
  - TREMOR [None]
